FAERS Safety Report 22034005 (Version 2)
Quarter: 2023Q1

REPORT INFORMATION
  Report Type: Spontaneous
  Country: MX (occurrence: MX)
  Receive Date: 20230224
  Receipt Date: 20230227
  Transmission Date: 20230417
  Serious: Yes (Death, Life-Threatening, Other)
  Sender: FDA-Public Use
  Company Number: MX-MLMSERVICE-20230210-4091406-1

PATIENT
  Age: 7 Month
  Sex: Male

DRUGS (4)
  1. SIROLIMUS [Suspect]
     Active Substance: SIROLIMUS
     Dosage: 0.8 MG/M2, 2X/DAY
  2. CYCLOSPORINE [Suspect]
     Active Substance: CYCLOSPORINE
     Indication: IPEX syndrome
     Dosage: 1 MG/KG, 1X/DAY
  3. HUMAN IMMUNOGLOBULIN G [Suspect]
     Active Substance: HUMAN IMMUNOGLOBULIN G
     Dosage: 1 G PER KG PER DOSE
     Route: 042
  4. HUMAN IMMUNOGLOBULIN G [Suspect]
     Active Substance: HUMAN IMMUNOGLOBULIN G
     Dosage: 1 G PER KG PER DOSE
     Route: 058

REACTIONS (3)
  - Infection [Fatal]
  - Septic shock [Fatal]
  - Off label use [Unknown]
